FAERS Safety Report 21831772 (Version 1)
Quarter: 2023Q1

REPORT INFORMATION
  Report Type: Spontaneous
  Country: US (occurrence: None)
  Receive Date: 20230106
  Receipt Date: 20230106
  Transmission Date: 20230418
  Serious: No
  Sender: FDA-Public Use
  Company Number: None

PATIENT
  Sex: 0

DRUGS (1)
  1. DEPAKOTE [Suspect]
     Active Substance: DIVALPROEX SODIUM

REACTIONS (5)
  - Homicidal ideation [None]
  - Therapeutic product effect incomplete [None]
  - Anxiety disorder [None]
  - Intellectual disability [None]
  - Attention deficit hyperactivity disorder [None]
